FAERS Safety Report 5649957-1 (Version None)
Quarter: 2008Q1

REPORT INFORMATION
  Report Type: 
  Country: None (occurrence: None)
  Receive Date: 20080222
  Receipt Date: 20080206
  Transmission Date: 20080703
  Serious: Yes (Death, Life-Threatening, Hospitalization)
  Sender: FDA-Public Use
  Company Number: 200711990

PATIENT
  Age: 56 Year
  Sex: Male

DRUGS (13)
  1. ZEMAIRA [Suspect]
     Indication: ALPHA-1 ANTI-TRYPSIN DEFICIENCY
     Dates: start: 20060828, end: 20070529
  2. PLACEBO [Suspect]
     Indication: ALPHA-1 ANTI-TRYPSIN DEFICIENCY
     Dates: start: 20060828, end: 20070529
  3. SINGULAIR [Concomitant]
  4. THEOPHYLLINE [Concomitant]
  5. PREDNISONE [Concomitant]
  6. TRIMETHOPRIM [Concomitant]
  7. NASACORT [Concomitant]
  8. ROCEPHIN [Concomitant]
  9. LEVAQUIN [Concomitant]
  10. SPIRIVA [Concomitant]
  11. OXYGEN [Concomitant]
  12. TERAZOSIN HCL [Concomitant]
  13. CALCIUM [Concomitant]

REACTIONS (9)
  - DEVICE OCCLUSION [None]
  - EMPYEMA [None]
  - PLEURISY [None]
  - PNEUMONIA [None]
  - PNEUMOTHORAX [None]
  - PROSTATE INFECTION [None]
  - REFUSAL OF TREATMENT BY RELATIVE [None]
  - RESPIRATORY FAILURE [None]
  - SEPSIS [None]
